FAERS Safety Report 20157007 (Version 1)
Quarter: 2021Q4

REPORT INFORMATION
  Report Type: Spontaneous
  Country: US (occurrence: None)
  Receive Date: 20211207
  Receipt Date: 20211207
  Transmission Date: 20220303
  Serious: Yes (Hospitalization)
  Sender: FDA-Public Use
  Company Number: None

PATIENT
  Sex: Male

DRUGS (12)
  1. XELJANZ XR [Suspect]
     Active Substance: TOFACITINIB CITRATE
     Indication: Rheumatoid arthritis
     Dosage: FREQUENCY : DAILY;?
     Route: 048
     Dates: start: 20180424
  2. XELJANZ XR [Suspect]
     Active Substance: TOFACITINIB CITRATE
     Indication: Rheumatoid factor positive
  3. BOTOX [Suspect]
     Active Substance: ONABOTULINUMTOXINA
     Indication: Hemiplegia
     Dosage: OTHER FREQUENCY : Q 90 DAYS;?
     Route: 058
     Dates: start: 20210303
  4. XARELTO [Concomitant]
     Active Substance: RIVAROXABAN
  5. STOOL SOFTENER (DOCUSATE) [Concomitant]
     Active Substance: DOCUSATE
  6. RAVOS [Concomitant]
  7. LISINOPRIL [Concomitant]
     Active Substance: LISINOPRIL
  8. FOLIC ACID [Concomitant]
     Active Substance: FOLIC ACID
  9. DONEPEZIL [Concomitant]
     Active Substance: DONEPEZIL
  10. CARVEDILOL [Concomitant]
     Active Substance: CARVEDILOL
  11. ATORVASTATIN [Concomitant]
     Active Substance: ATORVASTATIN
  12. AMIODARONE [Concomitant]
     Active Substance: AMIODARONE

REACTIONS (2)
  - Hospitalisation [None]
  - Therapy interrupted [None]
